FAERS Safety Report 18362321 (Version 1)
Quarter: 2020Q4

REPORT INFORMATION
  Report Type: Spontaneous
  Country: US (occurrence: US)
  Receive Date: 20201008
  Receipt Date: 20201008
  Transmission Date: 20210114
  Serious: Yes (Other)
  Sender: FDA-Public Use
  Company Number: NVSC2020US268451

PATIENT
  Sex: Female

DRUGS (2)
  1. KISQALI [Suspect]
     Active Substance: RIBOCICLIB
     Indication: BREAST CANCER FEMALE
     Route: 065
  2. IBRANCE [Suspect]
     Active Substance: PALBOCICLIB
     Indication: BREAST CANCER FEMALE
     Dosage: 1 DF, QD (FOR 7 DAYS ON THEN 7 DAYS OFF, TAKE WITH FOOD)
     Route: 048
     Dates: start: 201911

REACTIONS (3)
  - Breast cancer stage IV [Unknown]
  - Atrial fibrillation [Unknown]
  - Drug intolerance [Unknown]
